FAERS Safety Report 5291258-8 (Version None)
Quarter: 2007Q2

REPORT INFORMATION
  Report Type: 
  Country: None (occurrence: None)
  Receive Date: 20070409
  Receipt Date: 20070402
  Transmission Date: 20071010
  Serious: Yes (Hospitalization, Disabling)
  Sender: FDA-Public Use
  Company Number: US-BOEHRINGER INGELHEIM PHARMACEUTICALS, INC.-2007-BP-04207BP

PATIENT
  Sex: Male

DRUGS (1)
  1. FLOMAX [Suspect]
     Indication: PROSTATE EXAMINATION ABNORMAL
     Route: 048
     Dates: start: 20070302, end: 20070302

REACTIONS (6)
  - BLOOD PRESSURE DECREASED [None]
  - INTERVERTEBRAL DISC INJURY [None]
  - LOSS OF CONSCIOUSNESS [None]
  - MONOPLEGIA [None]
  - SPINAL FRACTURE [None]
  - TENDON INJURY [None]
